FAERS Safety Report 21627558 (Version 1)
Quarter: 2022Q4

REPORT INFORMATION
  Report Type: Spontaneous
  Country: US (occurrence: US)
  Receive Date: 20221122
  Receipt Date: 20221122
  Transmission Date: 20230113
  Serious: No
  Sender: FDA-Public Use
  Company Number: US-GLENMARK PHARMACEUTICALS-2022GMK076245

PATIENT

DRUGS (3)
  1. BETAMETHASONE DIPROPIONATE\CLOTRIMAZOLE [Suspect]
     Active Substance: BETAMETHASONE DIPROPIONATE\CLOTRIMAZOLE
     Indication: Wound
     Dosage: UNK UNK, BID
     Route: 061
     Dates: start: 20221025, end: 20221027
  2. BACTROBAN [Concomitant]
     Active Substance: MUPIROCIN\MUPIROCIN CALCIUM
     Indication: Wound
     Dosage: UNK, USED THE NIGHT HER KNEE GOT HURT
     Route: 061
  3. CEPHALEXIN [Concomitant]
     Active Substance: CEPHALEXIN
     Indication: Wound
     Dosage: UNK, TID
     Route: 048

REACTIONS (1)
  - Product use in unapproved indication [Unknown]
